FAERS Safety Report 8450805-5 (Version None)
Quarter: 2012Q2

REPORT INFORMATION
  Report Type: 
  Country: None (occurrence: None)
  Receive Date: 20120620
  Receipt Date: 20120605
  Transmission Date: 20120825
  Serious: Yes (Hospitalization, Other)
  Sender: FDA-Public Use
  Company Number: US-VIROPHARMA INCORPORATED-20120605CINRY3027

PATIENT
  Age: 11 Year
  Sex: Male
  Weight: 66 kg

DRUGS (2)
  1. CINRYZE [Suspect]
     Indication: HEREDITARY ANGIOEDEMA
     Dosage: UNKNOWN
     Dates: start: 20091201
  2. ADDERALL XR 10 [Concomitant]
     Indication: PRODUCT USED FOR UNKNOWN INDICATION
     Route: 065

REACTIONS (5)
  - OFF LABEL USE [None]
  - OSTEOMYELITIS [None]
  - PULMONARY EMBOLISM [None]
  - FOOT FRACTURE [None]
  - THROMBOSIS [None]
